FAERS Safety Report 7705767-2 (Version None)
Quarter: 2011Q3

REPORT INFORMATION
  Report Type: 
  Country: None (occurrence: None)
  Receive Date: 20110824
  Receipt Date: 20110824
  Transmission Date: 20111222
  Serious: No
  Sender: FDA-Public Use
  Company Number: None

PATIENT
  Age: 52 Year
  Sex: Female
  Weight: 76.203 kg

DRUGS (10)
  1. COLACE [Concomitant]
     Route: 048
  2. MOM UAD [Concomitant]
  3. ACCUPRIL [Concomitant]
     Route: 048
  4. CALCIUM WITH VIT D (OTC) [Concomitant]
     Route: 048
  5. ALBUTEROL [Concomitant]
  6. RHINOCORT [Concomitant]
     Route: 045
  7. ASPIRIN [Concomitant]
     Route: 048
  8. CELEXA [Concomitant]
     Route: 048
  9. EFFEXOR [Suspect]
     Indication: DEPRESSION
     Dosage: 1 TAB
     Route: 048
     Dates: start: 20100421, end: 20100828
  10. HYDROCHLOROTHIAZIDE [Concomitant]
     Route: 048

REACTIONS (7)
  - ANXIETY [None]
  - DEHYDRATION [None]
  - DIZZINESS [None]
  - HYPERHIDROSIS [None]
  - DRUG ADMINISTRATION ERROR [None]
  - TACHYCARDIA [None]
  - HYPERTHERMIA [None]
